FAERS Safety Report 6442930-5 (Version None)
Quarter: 2009Q4

REPORT INFORMATION
  Report Type: 
  Country: None (occurrence: None)
  Receive Date: 20091117
  Receipt Date: 20091106
  Transmission Date: 20100525
  Serious: Yes (Hospitalization)
  Sender: FDA-Public Use
  Company Number: CH-AMGEN-US374048

PATIENT
  Age: 48 Year
  Sex: Male

DRUGS (3)
  1. ENBREL [Suspect]
     Indication: PSORIATIC ARTHROPATHY
     Route: 058
     Dates: start: 20080201, end: 20090923
  2. ARAVA [Suspect]
     Indication: PSORIATIC ARTHROPATHY
     Dosage: DOSE AND FREQUENCY UNKNOWN, STOPPED IN APR-2009
     Dates: end: 20090401
  3. ATACAND HCT [Concomitant]
     Dosage: 8+12.5MG PER DAY
     Route: 048

REACTIONS (8)
  - DRUG INEFFECTIVE [None]
  - HEADACHE [None]
  - HEPATIC ENZYME ABNORMAL [None]
  - MENINGISM [None]
  - MENINGITIS [None]
  - NAUSEA [None]
  - UPPER RESPIRATORY TRACT INFECTION [None]
  - VOMITING [None]
